FAERS Safety Report 5514791-X (Version None)
Quarter: 2007Q4

REPORT INFORMATION
  Report Type: 
  Country: None (occurrence: None)
  Receive Date: 20071109
  Receipt Date: 20071026
  Transmission Date: 20080405
  Serious: Yes (Other)
  Sender: FDA-Public Use
  Company Number: 071101-0001249

PATIENT
  Sex: Male

DRUGS (2)
  1. NEOPROFEN [Suspect]
     Indication: PATENT DUCTUS ARTERIOSUS
     Dosage: 10 MG/KG; 1X; IV, 5 MG/KG; ; IV
     Route: 042
  2. DOPAMINE HCL [Concomitant]

REACTIONS (1)
  - NECROTISING ENTEROCOLITIS NEONATAL [None]
